FAERS Safety Report 8305705-8 (Version None)
Quarter: 2012Q2

REPORT INFORMATION
  Report Type: 
  Country: None (occurrence: None)
  Receive Date: 20120423
  Receipt Date: 20120417
  Transmission Date: 20120825
  Serious: Yes (Other)
  Sender: FDA-Public Use
  Company Number: US-JNJFOC-20120407919

PATIENT
  Sex: Female

DRUGS (6)
  1. DOXORUBICIN HCL [Suspect]
     Indication: FALLOPIAN TUBE CANCER
     Route: 042
  2. DOXORUBICIN HCL [Suspect]
     Indication: OVARIAN CANCER
     Route: 042
  3. LENALIDOMIDE [Suspect]
     Indication: OVARIAN CANCER
     Dosage: DOSE LEVEL 2
     Route: 065
  4. LENALIDOMIDE [Suspect]
     Indication: MALIGNANT PERITONEAL NEOPLASM
     Dosage: DOSE LEVEL 2
     Route: 065
  5. LENALIDOMIDE [Suspect]
     Indication: FALLOPIAN TUBE CANCER
     Dosage: DOSE LEVEL 2
     Route: 065
  6. DOXORUBICIN HCL [Suspect]
     Indication: MALIGNANT PERITONEAL NEOPLASM
     Route: 042

REACTIONS (5)
  - FATIGUE [None]
  - VISION BLURRED [None]
  - ATAXIA [None]
  - URTICARIA [None]
  - DIZZINESS [None]
